FAERS Safety Report 25567343 (Version 1)
Quarter: 2025Q3

REPORT INFORMATION
  Report Type: Spontaneous
  Country: EU (occurrence: EU)
  Receive Date: 20250716
  Receipt Date: 20250716
  Transmission Date: 20251020
  Serious: Yes (Life-Threatening, Other)
  Sender: FERRING
  Company Number: None

PATIENT

DRUGS (3)
  1. CHORIONIC GONADOTROPHIN [Suspect]
     Active Substance: CHORIOGONADOTROPIN ALFA
     Indication: Ovulation induction
     Route: 065
     Dates: start: 201203, end: 201210
  2. CLOMIPHENE [Suspect]
     Active Substance: CLOMIPHENE
     Indication: Infertility female
     Route: 048
     Dates: start: 201203, end: 201210
  3. ESTRADIOL [Suspect]
     Active Substance: ESTRADIOL
     Indication: Ovulation induction
     Route: 048
     Dates: start: 201203, end: 201210

REACTIONS (2)
  - Lymphocytosis [Not Recovered/Not Resolved]
  - Pseudolymphoma [Not Recovered/Not Resolved]

NARRATIVE: CASE EVENT DATE: 20120701
